FAERS Safety Report 21637829 (Version 4)
Quarter: 2023Q1

REPORT INFORMATION
  Report Type: Spontaneous
  Country: US (occurrence: US)
  Receive Date: 20221124
  Receipt Date: 20230227
  Transmission Date: 20230418
  Serious: No
  Sender: FDA-Public Use
  Company Number: US-BRISTOL-MYERS SQUIBB COMPANY-2022-140101

PATIENT
  Age: 81 Year
  Sex: Female

DRUGS (1)
  1. REVLIMID [Suspect]
     Active Substance: LENALIDOMIDE
     Indication: Plasma cell myeloma
     Dosage: TAKE 1 CAPSULE BY MOUTH DAILY ON DAYS 1-21, 7 DAYS OFF
     Route: 048
     Dates: start: 20210203

REACTIONS (5)
  - Musculoskeletal stiffness [Not Recovered/Not Resolved]
  - Joint stiffness [Unknown]
  - Product packaging issue [Unknown]
  - Pubic pain [Recovered/Resolved]
  - Product dose omission issue [Unknown]
